FAERS Safety Report 7265513-6 (Version None)
Quarter: 2011Q1

REPORT INFORMATION
  Report Type: 
  Country: None (occurrence: None)
  Receive Date: 20110131
  Receipt Date: 20110124
  Transmission Date: 20110831
  Serious: Yes (Hospitalization, Other)
  Sender: FDA-Public Use
  Company Number: JP-PFIZER INC-2010172543

PATIENT
  Age: 9 Year
  Sex: Female

DRUGS (11)
  1. FLUDARABINE [Concomitant]
     Indication: ACUTE MYELOID LEUKAEMIA
     Dosage: 25 MG, 1X/DAY
     Route: 042
     Dates: start: 20090915, end: 20090919
  2. FK506 [Concomitant]
     Indication: PROPHYLAXIS
  3. MYLOTARG [Suspect]
     Indication: ACUTE MYELOID LEUKAEMIA
     Dosage: 6 MG, 1X/DAY
     Route: 042
     Dates: start: 20090920, end: 20090920
  4. IDARUBICIN HCL [Suspect]
     Indication: ACUTE MYELOID LEUKAEMIA
     Dosage: 10 MG, 1X/DAY
     Route: 042
     Dates: start: 20090917, end: 20090918
  5. CYTARABINE [Suspect]
     Indication: ACUTE MYELOID LEUKAEMIA
     Dosage: 1 G, 2X/DAY
     Route: 042
     Dates: start: 20090915, end: 20090919
  6. ANTI-THYMOCYTE GLOBULIN NOS [Concomitant]
  7. ATARAX [Concomitant]
     Indication: PROPHYLAXIS
     Dosage: 25 MG, 1X/DAY
     Route: 042
     Dates: start: 20090921, end: 20090921
  8. METHOTREXATE [Concomitant]
     Indication: PROPHYLAXIS
  9. MELPHALAN [Concomitant]
  10. SOLU-MEDROL [Concomitant]
     Indication: PROPHYLAXIS
     Dosage: 40 MG, 1X/DAY
     Route: 042
     Dates: start: 20090920, end: 20090921
  11. METILON [Concomitant]
     Indication: PROPHYLAXIS
     Dosage: 100 MG, 1X/DAY
     Route: 042
     Dates: start: 20090920, end: 20090921

REACTIONS (5)
  - BACTERIAL INFECTION [None]
  - MUCOUS MEMBRANE DISORDER [None]
  - HAEMATOTOXICITY [None]
  - GRAFT VERSUS HOST DISEASE [None]
  - THROMBOTIC MICROANGIOPATHY [None]
